FAERS Safety Report 23602450 (Version 2)
Quarter: 2024Q1

REPORT INFORMATION
  Report Type: Spontaneous
  Country: US (occurrence: US)
  Receive Date: 20240306
  Receipt Date: 20240313
  Transmission Date: 20240409
  Serious: No
  Sender: FDA-Public Use
  Company Number: US-PFIZER INC-202400057448

PATIENT
  Age: 74 Year
  Sex: Female

DRUGS (7)
  1. IBRANCE [Suspect]
     Active Substance: PALBOCICLIB
     Dosage: 1 DF, 1X/DAY FOR 21 DAYS ON, THEN 7 DAYS OFF THEN REPEAT
     Dates: start: 202307
  2. CRESTOR [Concomitant]
     Active Substance: ROSUVASTATIN CALCIUM
  3. TYLENOL [Concomitant]
     Active Substance: ACETAMINOPHEN
  4. ANASTROZOLE [Concomitant]
     Active Substance: ANASTROZOLE
  5. CLONIDINE HYDROCHLORIDE [Concomitant]
     Active Substance: CLONIDINE HYDROCHLORIDE
  6. NAPROXEN [Concomitant]
     Active Substance: NAPROXEN
  7. LOSARTAN POTASSIUM [Concomitant]
     Active Substance: LOSARTAN POTASSIUM

REACTIONS (3)
  - Arthritis [Unknown]
  - Pain [Unknown]
  - Headache [Unknown]
